FAERS Safety Report 6623077-1 (Version None)
Quarter: 2010Q1

REPORT INFORMATION
  Report Type: 
  Country: None (occurrence: None)
  Receive Date: 20100305
  Receipt Date: 20100222
  Transmission Date: 20100710
  Serious: Yes (Death, Hospitalization)
  Sender: FDA-Public Use
  Company Number: POMP-1000846

PATIENT
  Age: 32 Month
  Sex: Female

DRUGS (1)
  1. MYOZYME [Suspect]
     Indication: GLYCOGEN STORAGE DISEASE TYPE II
     Dosage: 20 MG/KG, Q2W, INTRAVENOUS
     Route: 042
     Dates: start: 20080523, end: 20100112

REACTIONS (6)
  - BRONCHITIS [None]
  - CARDIAC ARREST [None]
  - DECEREBRATION [None]
  - DYSPNOEA [None]
  - GRAND MAL CONVULSION [None]
  - PYREXIA [None]
